FAERS Safety Report 6898099-6 (Version None)
Quarter: 2010Q3

REPORT INFORMATION
  Report Type: 
  Country: None (occurrence: None)
  Receive Date: 20100802
  Receipt Date: 20071001
  Transmission Date: 20110219
  Serious: Yes (Other)
  Sender: FDA-Public Use
  Company Number: US-PFIZER INC-2007063348

PATIENT
  Sex: Male
  Weight: 30.909 kg

DRUGS (17)
  1. LYRICA [Suspect]
     Indication: NEUROPATHY PERIPHERAL
     Route: 048
     Dates: start: 20070718
  2. MORPHINE SULFATE [Concomitant]
  3. MORPHINE SULFATE [Concomitant]
  4. ZESTORETIC [Concomitant]
  5. ISOSORBIDE [Concomitant]
  6. ATIVAN [Concomitant]
  7. LAMICTAL [Concomitant]
  8. LOVASTATIN [Concomitant]
  9. SEROQUEL [Concomitant]
  10. DILTIAZEM [Concomitant]
  11. ACETYLSALICYLIC ACID SRT [Concomitant]
  12. PRILOSEC [Concomitant]
  13. POTASSIUM CHLORIDE [Concomitant]
  14. FOLIC ACID [Concomitant]
  15. IRON [Concomitant]
  16. ALL OTHER THERAPEUTIC PRODUCTS [Concomitant]
  17. FLEXERIL [Concomitant]

REACTIONS (3)
  - CONFUSIONAL STATE [None]
  - OEDEMA PERIPHERAL [None]
  - PARANOIA [None]
